FAERS Safety Report 10213875 (Version 1)
Quarter: 2014Q2

REPORT INFORMATION
  Report Type: Spontaneous
  Country: US (occurrence: US)
  Receive Date: 20140603
  Receipt Date: 20140603
  Transmission Date: 20141212
  Serious: Yes (Hospitalization)
  Sender: FDA-Public Use
  Company Number: US-SA-2014SA069439

PATIENT
  Age: 33 Year
  Sex: Female

DRUGS (3)
  1. ZOLPIDEM [Suspect]
     Indication: INSOMNIA
     Route: 065
  2. ZOLPIDEM [Suspect]
     Indication: INSOMNIA
     Route: 048
  3. CLONAZEPAM [Concomitant]
     Indication: INSOMNIA

REACTIONS (17)
  - Schizoaffective disorder [Unknown]
  - Condition aggravated [Unknown]
  - Overdose [Unknown]
  - Fear [Unknown]
  - Paranoia [Unknown]
  - Suicidal ideation [Unknown]
  - Depressed mood [Unknown]
  - Insomnia [Unknown]
  - Hallucination, auditory [Unknown]
  - Disorientation [Unknown]
  - Dissociation [Unknown]
  - Gaze palsy [Unknown]
  - Metamorphopsia [Recovered/Resolved]
  - Visual impairment [Recovered/Resolved]
  - Altered visual depth perception [Recovered/Resolved]
  - Tremor [Unknown]
  - Tremor [Unknown]
